FAERS Safety Report 5595971-4 (Version None)
Quarter: 2008Q1

REPORT INFORMATION
  Report Type: 
  Country: None (occurrence: None)
  Receive Date: 20080118
  Receipt Date: 20070411
  Transmission Date: 20080703
  Serious: Yes (Hospitalization, Other)
  Sender: FDA-Public Use
  Company Number: US-ASTRAZENECA-2007UW25292

PATIENT
  Age: 11203 Day
  Sex: Male
  Weight: 106.8 kg

DRUGS (6)
  1. SEROQUEL [Suspect]
     Indication: BIPOLAR DISORDER
     Dosage: 150 MG-1200 MG
     Route: 048
     Dates: start: 20010906
  2. ZYPREXA [Concomitant]
     Dates: start: 20010612, end: 20020618
  3. HALDOL [Concomitant]
     Dates: start: 20020101
  4. THORAZINE [Concomitant]
     Dates: start: 19980101
  5. DEPAKOTE [Concomitant]
     Dates: start: 19980101, end: 20020101
  6. LITHIUM CARBONATE [Concomitant]
     Dates: start: 20050101

REACTIONS (19)
  - CARDIAC DISORDER [None]
  - CELLULITIS [None]
  - CHEST PAIN [None]
  - DIABETES MELLITUS [None]
  - DIABETIC GASTROPARESIS [None]
  - DIABETIC NEUROPATHY [None]
  - DYSPNOEA [None]
  - EAR PAIN [None]
  - GOUT [None]
  - HEAD INJURY [None]
  - INFECTION [None]
  - INSOMNIA [None]
  - NAUSEA [None]
  - OVERDOSE [None]
  - PAIN [None]
  - PHARYNGITIS [None]
  - RASH [None]
  - RECTAL HAEMORRHAGE [None]
  - WEIGHT INCREASED [None]
